FAERS Safety Report 9031726 (Version 1)
Quarter: 2013Q1

REPORT INFORMATION
  Report Type: Spontaneous
  Country: GB (occurrence: GB)
  Receive Date: 20130124
  Receipt Date: 20130124
  Transmission Date: 20140127
  Serious: Yes (Death, Hospitalization, Other)
  Sender: FDA-Public Use
  Company Number: GB-ELI_LILLY_AND_COMPANY-GB201301006798

PATIENT
  Age: 80 Year
  Sex: Male

DRUGS (1)
  1. EXENATIDE [Suspect]
     Route: 058

REACTIONS (6)
  - Pancreatitis [Fatal]
  - Syncope [Not Recovered/Not Resolved]
  - Multi-organ failure [Not Recovered/Not Resolved]
  - Liver function test abnormal [Not Recovered/Not Resolved]
  - Renal failure acute [Not Recovered/Not Resolved]
  - Abdominal pain [Not Recovered/Not Resolved]
